FAERS Safety Report 8852012 (Version 1)
Quarter: 2012Q4

REPORT INFORMATION
  Report Type: Report from Study
  Country: FR (occurrence: FR)
  Receive Date: 20121022
  Receipt Date: 20121022
  Transmission Date: 20130627
  Serious: Yes (Hospitalization)
  Sender: FDA-Public Use
  Company Number: FR-ASTELLAS-2012EU009042

PATIENT
  Age: 63 Year
  Sex: Male

DRUGS (5)
  1. SOLIFENACIN [Suspect]
     Indication: HYPERTONIC BLADDER
     Dosage: UNK
     Route: 048
     Dates: start: 20120810
  2. PHENERGAN                          /00033001/ [Concomitant]
     Indication: HYPERTENSION
     Dosage: 1 DF, UID/QD
     Route: 048
     Dates: start: 201109
  3. ALLOPURINOL [Concomitant]
     Indication: HYPERURICAEMIA
     Dosage: 100 mg, UID/QD
     Route: 048
     Dates: start: 2000
  4. TAMSULOSIN [Concomitant]
     Indication: BENIGN PROSTATIC HYPERPLASIA
     Dosage: 0.4 mg, UID/QD
     Route: 048
     Dates: start: 20110913
  5. VICTAN [Concomitant]
     Indication: ANXIETY
     Dosage: 2 mg, UID/QD
     Route: 048
     Dates: start: 2006

REACTIONS (1)
  - Cholecystitis acute [Not Recovered/Not Resolved]
